FAERS Safety Report 4391364-6 (Version None)
Quarter: 2004Q2

REPORT INFORMATION
  Report Type: 
  Country: None (occurrence: None)
  Receive Date: 20040621
  Receipt Date: 20031010
  Transmission Date: 20050107
  Serious: Yes (Death)
  Sender: FDA-Public Use
  Company Number: USA-2003-0010560

PATIENT
  Age: 33 Year
  Sex: Male

DRUGS (2)
  1. OXYCODONE HCL [Suspect]
     Dosage: MG
  2. HYDROCODONE BITARTRATE [Suspect]
     Indication: METASTATIC NEOPLASM

REACTIONS (1)
  - ACCIDENTAL OVERDOSE [None]
